FAERS Safety Report 14614165 (Version 1)
Quarter: 2018Q1

REPORT INFORMATION
  Report Type: Spontaneous
  Country: IT (occurrence: IT)
  Receive Date: 20180308
  Receipt Date: 20180308
  Transmission Date: 20180509
  Serious: Yes (Hospitalization)
  Sender: FDA-Public Use
  Company Number: IT-PFIZER INC-2018094283

PATIENT
  Age: 15 Year
  Sex: Male
  Weight: 63 kg

DRUGS (8)
  1. ENDOXAN-BAXTER [Suspect]
     Active Substance: CYCLOPHOSPHAMIDE
     Indication: BURKITT^S LYMPHOMA STAGE III
     Dosage: 470 MG, UNK
     Route: 042
     Dates: start: 20170712
  2. LASIX [Concomitant]
     Active Substance: FUROSEMIDE
     Indication: PROPHYLAXIS
     Dosage: 1 DF, UNK
     Route: 042
  3. UROMITEXAN [Concomitant]
     Active Substance: MESNA
     Indication: PROPHYLAXIS
     Dosage: 160 MG, UNK
     Route: 042
     Dates: start: 20170712, end: 20170712
  4. VINCRISTINE SULFATE. [Suspect]
     Active Substance: VINCRISTINE SULFATE
     Indication: BURKITT^S LYMPHOMA STAGE III
     Dosage: 1.6 MG, UNK
     Route: 042
     Dates: start: 20170712
  5. URBASON /00049601/ [Suspect]
     Active Substance: METHYLPREDNISOLONE
     Indication: BURKITT^S LYMPHOMA STAGE III
     Dosage: 90 MG, 1X/DAY
     Route: 042
     Dates: start: 20170712, end: 20170716
  6. LAEVOSAN [Concomitant]
     Indication: PARENTERAL NUTRITION
     Dosage: UNK
     Route: 042
  7. ZOFRAN [Concomitant]
     Active Substance: ONDANSETRON HYDROCHLORIDE
     Indication: NAUSEA
     Dosage: 6 MG, UNK
     Route: 042
     Dates: start: 20170712, end: 20170712
  8. ZOFRAN [Concomitant]
     Active Substance: ONDANSETRON HYDROCHLORIDE
     Indication: PROPHYLAXIS

REACTIONS (3)
  - Hyperhidrosis [Recovered/Resolved]
  - Acute kidney injury [Recovered/Resolved]
  - Nausea [Recovered/Resolved]

NARRATIVE: CASE EVENT DATE: 20170713
